FAERS Safety Report 20298397 (Version 1)
Quarter: 2022Q1

REPORT INFORMATION
  Report Type: Spontaneous
  Country: US (occurrence: US)
  Receive Date: 20220105
  Receipt Date: 20220105
  Transmission Date: 20220423
  Serious: Yes (Hospitalization, Other)
  Sender: FDA-Public Use
  Company Number: US-TELIGENT, INC-20210200008

PATIENT
  Sex: Female
  Weight: 74.83 kg

DRUGS (8)
  1. ZANTAC [Suspect]
     Active Substance: RANITIDINE HYDROCHLORIDE
     Indication: Product used for unknown indication
     Dosage: UNKNOWN DOSE
     Dates: start: 1997
  2. ZANTAC [Suspect]
     Active Substance: RANITIDINE HYDROCHLORIDE
     Dosage: UNKNOWN DOSE
     Dates: start: 20160603
  3. PENICILLIN [Suspect]
     Active Substance: PENICILLIN
     Dosage: UNK
     Dates: start: 1997
  4. TETRACYCLINE [Suspect]
     Active Substance: TETRACYCLINE
     Indication: Upper respiratory tract infection
     Dosage: UNK
     Dates: start: 1997
  5. TETRACYCLINE [Suspect]
     Active Substance: TETRACYCLINE
     Dosage: UNK
     Dates: start: 20160603
  6. PHENERGAN [Suspect]
     Active Substance: PROMETHAZINE HYDROCHLORIDE
     Dosage: UNK
     Dates: start: 1997
  7. SULFANILAMIDE [Suspect]
     Active Substance: SULFANILAMIDE
     Dosage: UNK
     Dates: start: 1997
  8. BACTRIM [Suspect]
     Active Substance: SULFAMETHOXAZOLE\TRIMETHOPRIM
     Dosage: UNK
     Dates: start: 1997

REACTIONS (1)
  - Anaphylactic reaction [Not Recovered/Not Resolved]

NARRATIVE: CASE EVENT DATE: 19970101
